FAERS Safety Report 9217169 (Version 3)
Quarter: 2013Q4

REPORT INFORMATION
  Report Type: Report from Study
  Country: FR (occurrence: FR)
  Receive Date: 20130408
  Receipt Date: 20131230
  Transmission Date: 20140711
  Serious: No
  Sender: FDA-Public Use
  Company Number: FR-UCBSA-082203

PATIENT
  Age: 50 Year
  Sex: Male
  Weight: 51 kg

DRUGS (3)
  1. CIMZIA [Suspect]
     Indication: RHEUMATOID ARTHRITIS
     Dosage: 400MG EVERY TWO WEEKS, THEN 200 MG EVERY TWO WEEKS
     Route: 058
     Dates: start: 20120420, end: 20130105
  2. METOJECT [Concomitant]
     Indication: RHEUMATOID ARTHRITIS
     Route: 058
     Dates: start: 20120501
  3. PREDNISONE [Concomitant]
     Indication: RHEUMATOID ARTHRITIS
     Route: 048
     Dates: start: 20101001

REACTIONS (1)
  - Fall [Unknown]
